FAERS Safety Report 11705058 (Version 2)
Quarter: 2016Q1

REPORT INFORMATION
  Report Type: Spontaneous
  Country: FR (occurrence: FR)
  Receive Date: 20151106
  Receipt Date: 20160304
  Transmission Date: 20160525
  Serious: Yes (Hospitalization)
  Sender: FDA-Public Use
  Company Number: FR-009507513-1511FRA002940

PATIENT
  Age: 68 Year
  Sex: Male

DRUGS (7)
  1. CELLCEPT [Concomitant]
     Active Substance: MYCOPHENOLATE MOFETIL\MYCOPHENOLATE MOFETIL HYDROCHLORIDE
     Dosage: UNK
     Dates: start: 20150910, end: 2015
  2. JANUVIA [Suspect]
     Active Substance: SITAGLIPTIN PHOSPHATE
     Indication: DIABETES MELLITUS
     Dosage: 50 MG, QD
     Route: 048
     Dates: start: 20151008, end: 20151026
  3. CORTANCYL [Concomitant]
     Active Substance: PREDNISONE
     Dosage: 60 MG, UNK
     Dates: start: 201510
  4. COUMADIN [Concomitant]
     Active Substance: WARFARIN SODIUM
     Dosage: UNK
     Dates: end: 201510
  5. CORTANCYL [Concomitant]
     Active Substance: PREDNISONE
     Dosage: 20 MG, UNK
     Dates: start: 2015, end: 2015
  6. OCTAGAM IMMUNE GLOBULIN (HUMAN) [Concomitant]
     Active Substance: HUMAN IMMUNOGLOBULIN G
     Dosage: UNK
     Dates: start: 20151016
  7. MYFORTIC [Concomitant]
     Active Substance: MYCOPHENOLATE SODIUM
     Dosage: UNK
     Dates: start: 2015, end: 201510

REACTIONS (2)
  - Thrombocytopenia [Not Recovered/Not Resolved]
  - Neutropenia [Not Recovered/Not Resolved]

NARRATIVE: CASE EVENT DATE: 20151023
